FAERS Safety Report 8999055 (Version 2)
Quarter: 2013Q1

REPORT INFORMATION
  Report Type: Spontaneous
  Country: US (occurrence: US)
  Receive Date: 20130103
  Receipt Date: 20130315
  Transmission Date: 20140127
  Serious: Yes (Hospitalization, Other)
  Sender: FDA-Public Use
  Company Number: US-BAYER-2013-000329

PATIENT
  Age: 32 Year
  Sex: Female
  Weight: 58.96 kg

DRUGS (17)
  1. YAZ [Suspect]
     Dosage: UNK
     Dates: start: 2006, end: 201012
  2. YASMIN [Suspect]
     Dosage: UNK
     Dates: start: 2006, end: 201012
  3. TAXOTERE [Concomitant]
     Indication: BREAST CANCER
  4. ADRIAMYCIN [Concomitant]
     Indication: BREAST CANCER
  5. CYTOXAN [Concomitant]
     Indication: BREAST CANCER
  6. MAXALT [Concomitant]
  7. TOPAMAX [Concomitant]
     Dosage: UNK
     Dates: start: 20101117
  8. LORTAB [HYDROCODONE BITARTRATE,PARACETAMOL] [Concomitant]
  9. MAG SALT [Concomitant]
  10. ZOFRAN [Concomitant]
     Dosage: UNK
     Dates: start: 20101221
  11. K-DUR [Concomitant]
     Dosage: UNK
     Dates: start: 20101221
  12. DILAUDID [Concomitant]
     Dosage: UNK
     Dates: start: 20101221
  13. XANAX [Concomitant]
     Indication: ANXIETY
  14. VALIUM [DIAZEPAM] [Concomitant]
     Indication: ANXIETY
  15. WELLBUTRIN [Concomitant]
     Indication: DEPRESSION
  16. LEXAPRO [Concomitant]
     Indication: DEPRESSION
  17. LEXAPRO [Concomitant]
     Indication: ANXIETY

REACTIONS (11)
  - Pulmonary embolism [Recovered/Resolved]
  - Thrombosis [None]
  - Vena cava thrombosis [Recovering/Resolving]
  - Jugular vein thrombosis [Recovering/Resolving]
  - Subclavian vein thrombosis [Recovering/Resolving]
  - Depression [None]
  - Injury [Recovered/Resolved]
  - Pain [Recovered/Resolved]
  - Emotional distress [None]
  - Anxiety [None]
  - Psychological trauma [None]
